FAERS Safety Report 12403252 (Version 1)
Quarter: 2016Q2

REPORT INFORMATION
  Report Type: Spontaneous
  Country: US (occurrence: US)
  Receive Date: 20160525
  Receipt Date: 20160525
  Transmission Date: 20160815
  Serious: Yes (Other)
  Sender: FDA-Public Use
  Company Number: US-009507513-1605USA008515

PATIENT
  Age: 18 Year
  Sex: Female
  Weight: 44.44 kg

DRUGS (1)
  1. IMPLANON [Suspect]
     Active Substance: ETONOGESTREL
     Dosage: 1 ROD/ 3 YEARS
     Route: 059
     Dates: start: 201211

REACTIONS (5)
  - Incorrect drug administration duration [Unknown]
  - Asthenia [Unknown]
  - Haemorrhage [Unknown]
  - Complication associated with device [Not Recovered/Not Resolved]
  - Weight decreased [Unknown]

NARRATIVE: CASE EVENT DATE: 201511
